FAERS Safety Report 24699048 (Version 2)
Quarter: 2025Q1

REPORT INFORMATION
  Report Type: Spontaneous
  Country: FR (occurrence: SN)
  Receive Date: 20241205
  Receipt Date: 20250103
  Transmission Date: 20250409
  Serious: Yes (Hospitalization)
  Sender: ALEXION PHARMACEUTICALS
  Company Number: FR-AstraZeneca-CH-00757082AM

PATIENT
  Age: 81 Year

DRUGS (2)
  1. TAGRISSO [Suspect]
     Active Substance: OSIMERTINIB
     Indication: Non-small cell lung cancer
  2. PEMETREXED [Concomitant]
     Active Substance: PEMETREXED

REACTIONS (2)
  - Fracture [Unknown]
  - Fall [Unknown]
